FAERS Safety Report 4896248-2 (Version None)
Quarter: 2006Q1

REPORT INFORMATION
  Report Type: 
  Country: None (occurrence: None)
  Receive Date: 20060126
  Receipt Date: 20060119
  Transmission Date: 20060701
  Serious: Yes (Hospitalization, Disabling)
  Sender: FDA-Public Use
  Company Number: 236385K05USA

PATIENT
  Age: 46 Year
  Sex: Male
  Weight: 65.7716 kg

DRUGS (4)
  1. REBIF [Suspect]
     Indication: MULTIPLE SCLEROSIS
     Dosage: 44 MCG, 3 IN 1 WEEKS; SUBCUTANEOUS
     Route: 058
     Dates: start: 20021125
  2. PAXIL [Concomitant]
  3. XANAX [Concomitant]
  4. SEIZURE MEDICATION (ANTIEPILEPTICS) [Concomitant]

REACTIONS (6)
  - ALCOHOL WITHDRAWAL SYNDROME [None]
  - CONVULSION [None]
  - FALL [None]
  - JOINT DISLOCATION [None]
  - PAIN [None]
  - UPPER LIMB FRACTURE [None]
